FAERS Safety Report 6581759-4 (Version None)
Quarter: 2010Q1

REPORT INFORMATION
  Report Type: 
  Country: None (occurrence: None)
  Receive Date: 20100215
  Receipt Date: 20100203
  Transmission Date: 20100710
  Serious: Yes (Other)
  Sender: FDA-Public Use
  Company Number: PHEH2010US01590

PATIENT
  Sex: Female

DRUGS (1)
  1. EXJADE [Suspect]
     Dosage: 500 MG, DAILY
     Route: 048

REACTIONS (2)
  - HERPES ZOSTER [None]
  - PAIN IN EXTREMITY [None]
